FAERS Safety Report 14665280 (Version 16)
Quarter: 2019Q1

REPORT INFORMATION
  Report Type: Spontaneous
  Country: CA (occurrence: CA)
  Receive Date: 20180321
  Receipt Date: 20190325
  Transmission Date: 20190417
  Serious: Yes (Other)
  Sender: FDA-Public Use
  Company Number: CA-CELLTRION INC.-2018CA017372

PATIENT

DRUGS (24)
  1. INFLECTRA [Suspect]
     Active Substance: INFLIXIMAB-DYYB
     Dosage: 500MG EVERY 4 WEEKS
     Route: 042
     Dates: start: 20181217
  2. INFLECTRA [Suspect]
     Active Substance: INFLIXIMAB-DYYB
     Dosage: 500MG EVERY 4 WEEKS
     Route: 042
     Dates: start: 20190311
  3. INFLECTRA [Suspect]
     Active Substance: INFLIXIMAB-DYYB
     Dosage: 500 MG, CYCLIC (EVERY 4 WEEKS)
     Route: 042
     Dates: start: 20170711
  4. INFLECTRA [Suspect]
     Active Substance: INFLIXIMAB-DYYB
     Dosage: 500 MG CYCLIC (THEN EVERY 8 WEEKS)
     Route: 042
     Dates: start: 20180105, end: 20180105
  5. INFLECTRA [Suspect]
     Active Substance: INFLIXIMAB-DYYB
     Dosage: 700MG ONCE THEN 500MG EVERY 4 WEEKS
     Route: 042
     Dates: start: 20180705
  6. INFLECTRA [Suspect]
     Active Substance: INFLIXIMAB-DYYB
     Dosage: 700MG ONCE THEN 500MG EVERY 4 WEEKS,
     Route: 042
     Dates: start: 20180925
  7. SEROQUEL [Concomitant]
     Active Substance: QUETIAPINE FUMARATE
     Dosage: 25 MG, TID (AS NEEDED)
     Route: 048
  8. INFLECTRA [Suspect]
     Active Substance: INFLIXIMAB-DYYB
     Dosage: 700 MG ONCE THEN 500MG EVERY 4 WEEKS,
     Route: 042
     Dates: start: 20180510
  9. INFLECTRA [Suspect]
     Active Substance: INFLIXIMAB-DYYB
     Dosage: 700MG ONCE THEN 500MG EVERY 4 WEEKS
     Route: 042
     Dates: start: 20181025
  10. INFLECTRA [Suspect]
     Active Substance: INFLIXIMAB-DYYB
     Dosage: 5 MG/KG, CYCLIC (THEN EVERY 8 WEEKS)
     Route: 042
  11. INFLECTRA [Suspect]
     Active Substance: INFLIXIMAB-DYYB
     Dosage: 485 MG
     Route: 065
     Dates: start: 20180412, end: 20180412
  12. INFLECTRA [Suspect]
     Active Substance: INFLIXIMAB-DYYB
     Indication: COLITIS ULCERATIVE
     Dosage: 900 MG, EVERY 0, 2, 6 WEEKS, THEN EVERY 8 WEEKS
     Route: 042
     Dates: start: 20170406, end: 20170518
  13. INFLECTRA [Suspect]
     Active Substance: INFLIXIMAB-DYYB
     Dosage: 700MG ONCE THEN 500MG EVERY 4 WEEKS,
     Route: 042
     Dates: start: 20180830
  14. INFLECTRA [Suspect]
     Active Substance: INFLIXIMAB-DYYB
     Dosage: 500MG EVERY 4 WEEKS
     Route: 042
     Dates: start: 20190114
  15. PAROXETINE. [Concomitant]
     Active Substance: PAROXETINE
     Dosage: 20 MG, QD
     Route: 048
  16. CLONAZEPAM. [Concomitant]
     Active Substance: CLONAZEPAM
     Dosage: 1 TAB, TID
  17. INFLECTRA [Suspect]
     Active Substance: INFLIXIMAB-DYYB
     Dosage: 500 MG CYCLIC (THEN EVERY 8 WEEKS)
     Route: 042
     Dates: start: 20180309, end: 20180309
  18. INFLECTRA [Suspect]
     Active Substance: INFLIXIMAB-DYYB
     Dosage: 500MG EVERY 4 WEEKS
     Route: 042
     Dates: start: 20190214
  19. SEROQUEL [Concomitant]
     Active Substance: QUETIAPINE FUMARATE
     Dosage: 25 MG TABLET AT 50 MG, ONCE DAILY (BEDTIME), AS NEEDED
     Route: 048
  20. INFLECTRA [Suspect]
     Active Substance: INFLIXIMAB-DYYB
     Dosage: 700MG ONCE THEN 500MG EVERY 4 WEEKS
     Route: 042
     Dates: start: 20180730
  21. INFLECTRA [Suspect]
     Active Substance: INFLIXIMAB-DYYB
     Dosage: 700MG ONCE THEN 500MG EVERY 4 WEEKS
     Route: 042
     Dates: start: 20181119
  22. CORTISONE [Concomitant]
     Active Substance: CORTISONE\HYDROCORTISONE
     Indication: GASTROINTESTINAL INFLAMMATION
     Dosage: UNK
     Dates: start: 201805
  23. INFLECTRA [Suspect]
     Active Substance: INFLIXIMAB-DYYB
     Dosage: 700MG ONCE THEN 500MG EVERY 4 WEEKS, CYCLIC
     Route: 042
     Dates: start: 20180606, end: 20180606
  24. INFLECTRA [Suspect]
     Active Substance: INFLIXIMAB-DYYB
     Dosage: 500MG EVERY 4 WEEKS
     Route: 042
     Dates: start: 20190114

REACTIONS (17)
  - Bronchitis [Recovered/Resolved]
  - Wound complication [Recovered/Resolved]
  - Distractibility [Unknown]
  - Wound [Recovered/Resolved]
  - Amnesia [Unknown]
  - Somnolence [Unknown]
  - Incorrect product administration duration [Unknown]
  - Product use issue [Unknown]
  - Arthralgia [Unknown]
  - Condition aggravated [Not Recovered/Not Resolved]
  - Wound infection [Recovered/Resolved]
  - Pharyngitis [Unknown]
  - Oropharyngeal pain [Unknown]
  - Aphonia [Recovered/Resolved]
  - Depressed mood [Not Recovered/Not Resolved]
  - Blood pressure fluctuation [Unknown]
  - Fatigue [Unknown]

NARRATIVE: CASE EVENT DATE: 20170406
